FAERS Safety Report 4615725-2 (Version None)
Quarter: 2005Q2

REPORT INFORMATION
  Report Type: 
  Country: None (occurrence: None)
  Receive Date: 20050310
  Receipt Date: 20050126
  Transmission Date: 20051028
  Serious: Yes (Other)
  Sender: FDA-Public Use
  Company Number: A03200403298

PATIENT
  Age: 74 Year
  Sex: Female
  Weight: 63.5036 kg

DRUGS (20)
  1. ELOXATIN [Suspect]
     Indication: PANCREATIC CARCINOMA METASTATIC
     Dosage: 163 MG/M2 Q2W - INTRAVENOUS NOS
     Route: 042
     Dates: start: 20040928, end: 20040928
  2. SERTRALINE HYDROCHLORIDE [Concomitant]
  3. OXYCODONE HCL [Concomitant]
  4. WARFARIN SODIUM [Concomitant]
  5. ASPIRIN [Concomitant]
  6. PROCHLORPERAZINE EDISYLATE [Concomitant]
  7. PANTOPRAZOLE SODIUM [Concomitant]
  8. LACTULOSE [Concomitant]
  9. SENNA [Concomitant]
  10. ONDANSETRON HYDROCHLORIDE [Concomitant]
  11. ZOLPIDEM TARTRATE [Concomitant]
  12. NAPROXEN SODIUM [Concomitant]
  13. LEVOTHYROXINE SODIUM [Concomitant]
  14. DIGOXIN [Concomitant]
  15. AMLODIPINE BESYLATE [Concomitant]
  16. PROPAFENONE [Concomitant]
  17. CALCIUM GLUCONATE [Concomitant]
  18. DEXAMETHASONE [Concomitant]
  19. GEMCITABINE HYDROCHLORIDE [Concomitant]
  20. DARBEPOETIN ALFA [Concomitant]

REACTIONS (9)
  - ABDOMINAL PAIN [None]
  - DYSPNOEA [None]
  - ERYTHEMA [None]
  - HYPERSENSITIVITY [None]
  - NAUSEA [None]
  - OXYGEN SATURATION DECREASED [None]
  - PRURITUS [None]
  - RASH [None]
  - VOMITING [None]
